FAERS Safety Report 5450158-0 (Version None)
Quarter: 2007Q3

REPORT INFORMATION
  Report Type: 
  Country: None (occurrence: None)
  Receive Date: 20070912
  Receipt Date: 20070831
  Transmission Date: 20080115
  Serious: Yes (Life-Threatening, Hospitalization)
  Sender: FDA-Public Use
  Company Number: B0486587A

PATIENT
  Age: 40 Year
  Sex: Female

DRUGS (3)
  1. KIVEXA [Suspect]
     Indication: DRUG USE FOR UNKNOWN INDICATION
  2. VIRAMUNE [Suspect]
     Indication: DRUG USE FOR UNKNOWN INDICATION
  3. CHINESE HERBAL MEDICINE [Suspect]

REACTIONS (4)
  - ALANINE AMINOTRANSFERASE INCREASED [None]
  - ASPARTATE AMINOTRANSFERASE INCREASED [None]
  - COMA HEPATIC [None]
  - HEPATIC FAILURE [None]
